FAERS Safety Report 5524732-7 (Version None)
Quarter: 2007Q4

REPORT INFORMATION
  Report Type: 
  Country: None (occurrence: None)
  Receive Date: 20071123
  Receipt Date: 20071116
  Transmission Date: 20080405
  Serious: Yes (Hospitalization)
  Sender: FDA-Public Use
  Company Number: PHBS2007CN19338

PATIENT
  Age: 44 Year
  Sex: Male

DRUGS (1)
  1. SEBIVO [Suspect]
     Dosage: 600 MG, QD
     Route: 048
     Dates: start: 20070507

REACTIONS (2)
  - ABDOMINAL DISCOMFORT [None]
  - INTESTINAL OPERATION [None]
